FAERS Safety Report 16916260 (Version 1)
Quarter: 2019Q4

REPORT INFORMATION
  Report Type: Report from Study
  Country: US (occurrence: US)
  Receive Date: 20191014
  Receipt Date: 20191014
  Transmission Date: 20200122
  Serious: No
  Sender: FDA-Public Use
  Company Number: US-JNJFOC-20191006793

PATIENT
  Sex: Male

DRUGS (15)
  1. LEVOTHYROXINE. [Concomitant]
     Active Substance: LEVOTHYROXINE
     Route: 048
  2. TAMSULOSIN HCL [Concomitant]
     Active Substance: TAMSULOSIN HYDROCHLORIDE
     Route: 048
  3. IRON [Concomitant]
     Active Substance: IRON
     Route: 048
  4. VITAMIN E                          /00110502/ [Concomitant]
     Route: 048
  5. PRAVASTATIN. [Concomitant]
     Active Substance: PRAVASTATIN
     Route: 048
  6. STELARA [Suspect]
     Active Substance: USTEKINUMAB
     Indication: CROHN^S DISEASE
     Route: 058
  7. POTASSIUM [Concomitant]
     Active Substance: POTASSIUM
     Route: 048
  8. LOPERAMIDE HCL [Concomitant]
     Active Substance: LOPERAMIDE HYDROCHLORIDE
     Route: 048
  9. LATANOPROST. [Concomitant]
     Active Substance: LATANOPROST
     Route: 065
  10. CALCIUM                            /00060701/ [Concomitant]
     Active Substance: CALCIUM
     Route: 048
  11. FISH OIL [Concomitant]
     Active Substance: FISH OIL
     Route: 048
  12. LOSARTAN POTASSIUM. [Concomitant]
     Active Substance: LOSARTAN POTASSIUM
     Route: 048
  13. TYLENOL [Concomitant]
     Active Substance: ACETAMINOPHEN
     Route: 048
  14. VITAMIN D3 [Concomitant]
     Active Substance: CHOLECALCIFEROL
     Route: 048
  15. MIRALAX [Concomitant]
     Active Substance: POLYETHYLENE GLYCOL 3350

REACTIONS (2)
  - Prostatic specific antigen increased [Unknown]
  - Nasopharyngitis [Unknown]
